FAERS Safety Report 6656208-8 (Version None)
Quarter: 2010Q1

REPORT INFORMATION
  Report Type: 
  Country: None (occurrence: None)
  Receive Date: 20100326
  Receipt Date: 20100326
  Transmission Date: 20100710
  Serious: No
  Sender: FDA-Public Use
  Company Number: None

PATIENT
  Age: 85 Year
  Sex: Male
  Weight: 81.6475 kg

DRUGS (1)
  1. SIMVASTATIN [Suspect]

REACTIONS (2)
  - MIDDLE INSOMNIA [None]
  - TRANSIENT GLOBAL AMNESIA [None]
